FAERS Safety Report 16080269 (Version 1)
Quarter: 2019Q1

REPORT INFORMATION
  Report Type: Spontaneous
  Country: US (occurrence: US)
  Receive Date: 20190315
  Receipt Date: 20190315
  Transmission Date: 20190418
  Serious: Yes (Other)
  Sender: FDA-Public Use
  Company Number: US-PTC THERAPEUTICS, INC.-US-2018PTC001282

PATIENT

DRUGS (1)
  1. EMFLAZA [Suspect]
     Active Substance: DEFLAZACORT
     Indication: MUSCULAR DYSTROPHY
     Dosage: 37.5 MG, UNK
     Route: 065
     Dates: start: 20170908

REACTIONS (3)
  - Lower limb fracture [Unknown]
  - Fluid retention [Unknown]
  - Swelling face [Unknown]

NARRATIVE: CASE EVENT DATE: 201809
